FAERS Safety Report 14914837 (Version 4)
Quarter: 2018Q4

REPORT INFORMATION
  Report Type: Report from Study
  Country: CA (occurrence: CA)
  Receive Date: 20180518
  Receipt Date: 20181005
  Transmission Date: 20190204
  Serious: Yes (Death, Hospitalization)
  Sender: FDA-Public Use
  Company Number: CA-HLSUS-2018-CA-000756

PATIENT
  Sex: Male

DRUGS (11)
  1. CELEBREX [Concomitant]
     Active Substance: CELECOXIB
  2. ROSUVASTATIN. [Concomitant]
     Active Substance: ROSUVASTATIN
  3. LAMOTRIGINE. [Concomitant]
     Active Substance: LAMOTRIGINE
     Dosage: 100 MG IN THE MORNING AND 150MG AT BEDTIME
  4. ASPIRIN. [Concomitant]
     Active Substance: ASPIRIN
  5. ACETAMINOPHEN. [Concomitant]
     Active Substance: ACETAMINOPHEN
  6. ALENDRONATE [Concomitant]
     Active Substance: ALENDRONATE SODIUM
  7. HYDROMORPH HYDROCONTIN [Concomitant]
  8. QUETIAPINE XR [Concomitant]
     Active Substance: QUETIAPINE
     Dosage: 200 MG AT BEDTIME
  9. RABEPRAZOLE [Concomitant]
     Active Substance: RABEPRAZOLE
  10. CLOZARIL [Suspect]
     Active Substance: CLOZAPINE
     Indication: SCHIZOAFFECTIVE DISORDER BIPOLAR TYPE
     Dosage: 100 MG IN THE MORNING AND 300MG AT BEDTIME
     Route: 048
  11. SALBUTAMOL [Concomitant]
     Active Substance: ALBUTEROL
     Dosage: PRN

REACTIONS (2)
  - Malaise [Unknown]
  - Non-small cell lung cancer metastatic [Fatal]
